FAERS Safety Report 12710719 (Version 1)
Quarter: 2016Q3

REPORT INFORMATION
  Report Type: Spontaneous
  Country: US (occurrence: US)
  Receive Date: 20160902
  Receipt Date: 20160902
  Transmission Date: 20161109
  Serious: Yes (Other)
  Sender: FDA-Public Use
  Company Number: US-BRISTOL-MYERS SQUIBB COMPANY-BMS-2016-071511

PATIENT

DRUGS (4)
  1. ELIQUIS [Suspect]
     Active Substance: APIXABAN
     Indication: DEEP VEIN THROMBOSIS
  2. ELIQUIS [Suspect]
     Active Substance: APIXABAN
     Indication: PULMONARY EMBOLISM
     Route: 065
  3. FRUCTOSE [Concomitant]
     Active Substance: FRUCTOSE
     Indication: PULMONARY EMBOLISM
     Route: 065
  4. FRUCTOSE [Concomitant]
     Active Substance: FRUCTOSE
     Indication: DEEP VEIN THROMBOSIS

REACTIONS (1)
  - Deep vein thrombosis [Not Recovered/Not Resolved]
